FAERS Safety Report 20853585 (Version 1)
Quarter: 2022Q2

REPORT INFORMATION
  Report Type: Spontaneous
  Country: US (occurrence: US)
  Receive Date: 20220520
  Receipt Date: 20220520
  Transmission Date: 20220720
  Serious: Yes (Other)
  Sender: FDA-Public Use
  Company Number: US-TAKEDA-2022TUS032416

PATIENT
  Sex: Female

DRUGS (5)
  1. NATPARA (PARATHYROID HORMONE) [Suspect]
     Active Substance: PARATHYROID HORMONE
     Indication: Post procedural hypothyroidism
     Dosage: 75 MICROGRAM, QD
     Route: 065
     Dates: start: 2014, end: 2019
  2. NATPARA (PARATHYROID HORMONE) [Suspect]
     Active Substance: PARATHYROID HORMONE
     Indication: Post procedural hypothyroidism
     Dosage: 75 MICROGRAM, QD
     Route: 065
     Dates: start: 2014, end: 2019
  3. NATPARA (PARATHYROID HORMONE) [Suspect]
     Active Substance: PARATHYROID HORMONE
     Indication: Post procedural hypothyroidism
     Dosage: 75 MICROGRAM, QD
     Route: 065
     Dates: start: 2014, end: 2019
  4. CALCITRIOL [Suspect]
     Active Substance: CALCITRIOL
     Indication: Post procedural hypothyroidism
     Dosage: 0.5 MICROGRAM, BID
     Route: 065
  5. CALCIUM MALATE [Suspect]
     Active Substance: CALCIUM MALATE
     Indication: Post procedural hypothyroidism
     Dosage: 4800 MILLIGRAM, QD
     Route: 065

REACTIONS (5)
  - Nephrolithiasis [Not Recovered/Not Resolved]
  - Urine calcium increased [Unknown]
  - Blood calcium abnormal [Unknown]
  - Adverse drug reaction [Unknown]
  - Recalled product [Unknown]
